FAERS Safety Report 21405171 (Version 1)
Quarter: 2022Q4

REPORT INFORMATION
  Report Type: Spontaneous
  Country: JP (occurrence: JP)
  Receive Date: 20221004
  Receipt Date: 20221004
  Transmission Date: 20230113
  Serious: Yes (Other)
  Sender: FDA-Public Use
  Company Number: JP-ABBVIE-4134517

PATIENT
  Age: 74 Year
  Sex: Male

DRUGS (2)
  1. VENCLEXTA [Suspect]
     Active Substance: VENETOCLAX
     Indication: Product used for unknown indication
     Route: 048
     Dates: start: 20220331, end: 20220608
  2. ITRACONAZOLE [Concomitant]
     Active Substance: ITRACONAZOLE
     Indication: Product used for unknown indication
     Route: 048
     Dates: start: 20220330, end: 20220608

REACTIONS (4)
  - Pancytopenia [Recovering/Resolving]
  - Infection [Unknown]
  - Cellulitis [Recovering/Resolving]
  - Full blood count abnormal [Unknown]

NARRATIVE: CASE EVENT DATE: 20220101
